FAERS Safety Report 20559875 (Version 4)
Quarter: 2022Q2

REPORT INFORMATION
  Report Type: Report from Study
  Country: US (occurrence: US)
  Receive Date: 20220307
  Receipt Date: 20220402
  Transmission Date: 20220721
  Serious: Yes (Hospitalization)
  Sender: FDA-Public Use
  Company Number: US-NOVARTISPH-NVSC2022US048349

PATIENT
  Sex: Female

DRUGS (4)
  1. ENTRESTO [Suspect]
     Active Substance: SACUBITRIL\VALSARTAN
     Indication: Product used for unknown indication
     Dosage: UNK
     Route: 065
     Dates: start: 20220127
  2. JARDIANCE [Concomitant]
     Active Substance: EMPAGLIFLOZIN
     Indication: Product used for unknown indication
     Dosage: UNK
     Route: 065
  3. LOSARTAN [Concomitant]
     Active Substance: LOSARTAN
     Indication: Product used for unknown indication
     Dosage: UNK
     Route: 065
  4. ELIQUIS [Concomitant]
     Active Substance: APIXABAN
     Indication: Product used for unknown indication
     Dosage: UNK
     Route: 065

REACTIONS (9)
  - Myocardial infarction [Unknown]
  - Sluggishness [Unknown]
  - Stress [Unknown]
  - Fatigue [Unknown]
  - Blood pressure increased [Unknown]
  - Cough [Unknown]
  - Dizziness [Unknown]
  - Inappropriate schedule of product administration [Unknown]
  - Product dose omission in error [Unknown]
